FAERS Safety Report 10421572 (Version 6)
Quarter: 2015Q2

REPORT INFORMATION
  Report Type: Report from Study
  Country: BR (occurrence: BR)
  Receive Date: 20140901
  Receipt Date: 20150410
  Transmission Date: 20150821
  Serious: Yes (Hospitalization, Other)
  Sender: FDA-Public Use
  Company Number: BR-BIOGENIDEC-2014BI036090

PATIENT
  Age: 65 Year
  Sex: Female

DRUGS (19)
  1. RIVOTRIL [Concomitant]
     Active Substance: CLONAZEPAM
     Indication: GASTROINTESTINAL DISORDER
  2. BUSONID (BUDESONIDE) [Concomitant]
     Active Substance: BUDESONIDE
     Indication: ASTHMA
  3. ADDERA D3 [Concomitant]
     Active Substance: CHOLECALCIFEROL
     Indication: GASTROINTESTINAL DISORDER
  4. DIPYRONE [Concomitant]
     Active Substance: DIPYRONE
     Indication: TACHYCARDIA
     Route: 042
  5. DIPYRONE [Concomitant]
     Active Substance: DIPYRONE
     Indication: MALAISE
     Route: 042
  6. TYLENOL [Concomitant]
     Active Substance: ACETAMINOPHEN
     Indication: PREMEDICATION
  7. OMEPRAZOLE. [Concomitant]
     Active Substance: OMEPRAZOLE
     Indication: GASTROINTESTINAL DISORDER
  8. ALENIA (BUSONIDE+FORMOTEROL FUMARATE) [Concomitant]
     Indication: ASTHMA
  9. DIPYRONE [Concomitant]
     Active Substance: DIPYRONE
     Indication: PYREXIA
     Route: 042
  10. DIPYRONE [Concomitant]
     Active Substance: DIPYRONE
     Indication: MALAISE
     Route: 042
  11. NITROFURANTOIN. [Concomitant]
     Active Substance: NITROFURANTOIN
     Indication: PROPHYLAXIS
     Dates: start: 20140510, end: 20140710
  12. AVONEX [Suspect]
     Active Substance: INTERFERON BETA-1A
     Indication: MULTIPLE SCLEROSIS
     Route: 030
     Dates: start: 20140407
  13. RIVOTRIL [Concomitant]
     Active Substance: CLONAZEPAM
     Indication: INSOMNIA
  14. AVONEX [Suspect]
     Active Substance: INTERFERON BETA-1A
     Indication: MULTIPLE SCLEROSIS
     Route: 030
     Dates: start: 20140314
  15. AVONEX [Suspect]
     Active Substance: INTERFERON BETA-1A
     Indication: MULTIPLE SCLEROSIS
     Route: 030
     Dates: start: 201408, end: 201409
  16. PROLIV (LACTOBACILLUS ACIDOPHILUS) [Concomitant]
     Indication: GASTROINTESTINAL DISORDER
  17. BUSONID (BUDESONIDE) [Concomitant]
     Active Substance: BUDESONIDE
     Indication: RESPIRATORY MUSCLE WEAKNESS
  18. DIPYRONE [Concomitant]
     Active Substance: DIPYRONE
     Indication: PREMEDICATION
     Route: 042
  19. MACRODANTIN [Concomitant]
     Active Substance: NITROFURANTOIN
     Indication: PROPHYLAXIS
     Dates: start: 20140510, end: 20140710

REACTIONS (36)
  - Urinary tract infection [Recovered/Resolved]
  - Metamorphopsia [Unknown]
  - Gastroenteritis [Not Recovered/Not Resolved]
  - Gait disturbance [Unknown]
  - Lung disorder [Unknown]
  - Gastrooesophageal reflux disease [Unknown]
  - Hyperhidrosis [Not Recovered/Not Resolved]
  - Arthralgia [Unknown]
  - Hypersensitivity [Unknown]
  - Decreased appetite [Unknown]
  - Balance disorder [Unknown]
  - Nasopharyngitis [Unknown]
  - Muscle spasms [Unknown]
  - Multiple sclerosis [Not Recovered/Not Resolved]
  - Pyrexia [Recovered/Resolved]
  - Fatigue [Recovered/Resolved]
  - Coordination abnormal [Unknown]
  - Influenza like illness [Unknown]
  - Muscular weakness [Unknown]
  - Tachycardia [Recovered/Resolved]
  - Neuromyelitis optica [Unknown]
  - Pain [Recovered/Resolved]
  - Dyspnoea [Unknown]
  - Multiple sclerosis relapse [Unknown]
  - Viral sinusitis [Unknown]
  - Fluid intake reduced [Unknown]
  - Malaise [Recovered/Resolved]
  - Neurogenic bladder [Recovered/Resolved]
  - Musculoskeletal pain [Unknown]
  - Asthenia [Unknown]
  - Diarrhoea [Unknown]
  - Pulmonary fibrosis [Unknown]
  - Vertigo [Unknown]
  - General symptom [Unknown]
  - Joint stiffness [Unknown]
  - Diabetes mellitus [Unknown]

NARRATIVE: CASE EVENT DATE: 2014
